FAERS Safety Report 9856351 (Version 1)
Quarter: 2014Q1

REPORT INFORMATION
  Report Type: Report from Study
  Country: CA (occurrence: CA)
  Receive Date: 20140130
  Receipt Date: 20140130
  Transmission Date: 20141002
  Serious: Yes (Other)
  Sender: FDA-Public Use
  Company Number: CA-BRISTOL-MYERS SQUIBB COMPANY-20079539

PATIENT
  Age: 71 Year
  Sex: Female

DRUGS (10)
  1. ORENCIA [Suspect]
     Indication: RHEUMATOID ARTHRITIS
     Dosage: 1DF=750 UNITS NOS
     Dates: start: 20121010
  2. PREDNISONE [Concomitant]
  3. METHOTREXATE [Concomitant]
  4. CALCIUM [Concomitant]
  5. VITAMIN D [Concomitant]
  6. SULFASALAZINE [Concomitant]
  7. FOLIC ACID [Concomitant]
  8. ALENDRONATE [Concomitant]
  9. PANTOPRAZOLE [Concomitant]
  10. TRIAZID [Concomitant]

REACTIONS (1)
  - Polyp [Unknown]
